FAERS Safety Report 18916315 (Version 1)
Quarter: 2021Q1

REPORT INFORMATION
  Report Type: Spontaneous
  Country: US (occurrence: US)
  Receive Date: 20210219
  Receipt Date: 20210219
  Transmission Date: 20210420
  Serious: Yes (Hospitalization)
  Sender: FDA-Public Use
  Company Number: None

PATIENT
  Sex: Female

DRUGS (10)
  1. LISINOPRIL. [Concomitant]
     Active Substance: LISINOPRIL
  2. NEUPOGEN [Concomitant]
     Active Substance: FILGRASTIM
  3. NEUPOGEN [Suspect]
     Active Substance: FILGRASTIM
     Indication: ENDOMETRIAL CANCER
     Dosage: ?          OTHER FREQUENCY:ARXWP HASNT DISPEN;?
  4. FELODIPINE. [Concomitant]
     Active Substance: FELODIPINE
  5. PROPRANOLOL [Concomitant]
     Active Substance: PROPRANOLOL HYDROCHLORIDE
  6. CALCITRIOL. [Concomitant]
     Active Substance: CALCITRIOL
  7. IMITREX [Concomitant]
     Active Substance: SUMATRIPTAN SUCCINATE
  8. PRAVASTATIN. [Concomitant]
     Active Substance: PRAVASTATIN
  9. LRVOTHYROXIN [Concomitant]
  10. PANTOPRAZOLE [Concomitant]
     Active Substance: PANTOPRAZOLE

REACTIONS (1)
  - Product availability issue [None]
